FAERS Safety Report 5285661-X (Version None)
Quarter: 2007Q1

REPORT INFORMATION
  Report Type: 
  Country: None (occurrence: None)
  Receive Date: 20070126
  Receipt Date: 20061024
  Transmission Date: 20070707
  Serious: No
  Sender: FDA-Public Use
  Company Number: 012594

PATIENT
  Age: 39 Year
  Sex: Male

DRUGS (10)
  1. PRIALT [Suspect]
     Indication: BACK PAIN
     Dosage: SEE IMAGE
     Route: 037
     Dates: end: 20060925
  2. PRIALT [Suspect]
     Indication: BACK PAIN
     Dosage: SEE IMAGE
     Route: 037
     Dates: start: 20050201
  3. HYDROMORPHONE HCL [Concomitant]
  4. BACLOFEN [Concomitant]
  5. CLONIDINE [Concomitant]
  6. MS CONTIN [Concomitant]
  7. DILAUDID [Concomitant]
  8. NORCO [Concomitant]
  9. CYMBALTA [Concomitant]
  10. FIORINAL /01000501/ (ACETYLSALICYLIC ACID, BUTALIBITAL, CAFFEINE) [Concomitant]

REACTIONS (6)
  - ANOREXIA [None]
  - CONFUSIONAL STATE [None]
  - DEHYDRATION [None]
  - DIARRHOEA [None]
  - VOMITING [None]
  - WEIGHT DECREASED [None]
